FAERS Safety Report 9830485 (Version 1)
Quarter: 2014Q1

REPORT INFORMATION
  Report Type: Report from Study
  Country: JP (occurrence: JP)
  Receive Date: 20140120
  Receipt Date: 20140120
  Transmission Date: 20141002
  Serious: Yes (Hospitalization)
  Sender: FDA-Public Use
  Company Number: JP-GLAXOSMITHKLINE-B0961245A

PATIENT
  Age: 61 Year
  Sex: Male
  Weight: 66 kg

DRUGS (20)
  1. REVOLADE [Suspect]
     Indication: IMMUNE THROMBOCYTOPENIC PURPURA
     Route: 048
     Dates: start: 20110126, end: 20110208
  2. REVOLADE [Suspect]
     Indication: IMMUNE THROMBOCYTOPENIC PURPURA
     Route: 048
     Dates: start: 20110209, end: 20110307
  3. REVOLADE [Suspect]
     Indication: IMMUNE THROMBOCYTOPENIC PURPURA
     Route: 048
     Dates: start: 20110308, end: 20111212
  4. REVOLADE [Suspect]
     Indication: IMMUNE THROMBOCYTOPENIC PURPURA
     Route: 048
     Dates: start: 20120131
  5. PREDONINE [Concomitant]
     Route: 048
  6. PREDONINE [Concomitant]
     Route: 048
     Dates: start: 20110209
  7. PREDONINE [Concomitant]
     Route: 048
     Dates: start: 20110223
  8. PREDONINE [Concomitant]
     Route: 048
     Dates: start: 20110524, end: 20110621
  9. ROMIPLATE [Concomitant]
     Route: 058
     Dates: start: 20111214, end: 20120105
  10. HYPEN [Concomitant]
     Route: 048
     Dates: end: 20110902
  11. MUCOSTA [Concomitant]
     Route: 048
     Dates: end: 20110902
  12. PURSENNID [Concomitant]
     Route: 048
  13. LENDORMIN [Concomitant]
     Route: 048
  14. MAGLAX [Concomitant]
     Route: 048
     Dates: start: 20111115
  15. BUSCOPAN [Concomitant]
     Dates: start: 20111212, end: 20121212
  16. SOSEGON [Concomitant]
     Dates: start: 20111212, end: 20121226
  17. ATARAX-P [Concomitant]
     Dates: start: 20111214, end: 20121226
  18. CEFMETAZON [Concomitant]
     Dates: start: 20111226, end: 20111227
  19. MORPHINE HYDROCHLORIDE [Concomitant]
     Dates: start: 20111227, end: 20111228
  20. FIRSTCIN [Concomitant]
     Route: 042
     Dates: start: 20120104, end: 20120110

REACTIONS (2)
  - Colon cancer [Recovered/Resolved]
  - Post procedural infection [Recovered/Resolved]
